FAERS Safety Report 24917188 (Version 2)
Quarter: 2025Q3

REPORT INFORMATION
  Report Type: Spontaneous
  Country: AU (occurrence: AU)
  Receive Date: 20250203
  Receipt Date: 20250802
  Transmission Date: 20251021
  Serious: Yes (Hospitalization, Other)
  Sender: ALEXION PHARMACEUTICALS
  Company Number: AU-SA-2025SA023460

PATIENT
  Sex: Male

DRUGS (1)
  1. NIRSEVIMAB [Suspect]
     Active Substance: NIRSEVIMAB
     Route: 065
     Dates: start: 20240606, end: 20240606

REACTIONS (8)
  - Anaemia [Unknown]
  - Blood fibrinogen decreased [Unknown]
  - Fibrin D dimer [Unknown]
  - Congenital fibrosarcoma [Unknown]
  - Haemangioma-thrombocytopenia syndrome [Unknown]
  - Kaposiform haemangioendothelioma [Unknown]
  - Prothrombin level increased [Unknown]
  - Thrombocytopenia [Unknown]

NARRATIVE: CASE EVENT DATE: 20240620
